FAERS Safety Report 6751452-3 (Version None)
Quarter: 2010Q2

REPORT INFORMATION
  Report Type: 
  Country: None (occurrence: None)
  Receive Date: 20100602
  Receipt Date: 20100524
  Transmission Date: 20101027
  Serious: Yes (Death)
  Sender: FDA-Public Use
  Company Number: GB-ROCHE-700553

PATIENT

DRUGS (10)
  1. MYCOPHENOLATE MOFETIL [Suspect]
     Indication: DRUG USE FOR UNKNOWN INDICATION
     Route: 065
     Dates: start: 20090305, end: 20090310
  2. ZENAPAX [Suspect]
     Indication: DRUG USE FOR UNKNOWN INDICATION
     Route: 065
     Dates: start: 20090303
  3. ZENAPAX [Suspect]
     Dosage: DACLIZUMAB : GIVEN ON D1 AND D4 1 MG/ KG IN 50 ML 0.9 % SALINE OVER 15 MINUTES 3 DOSES.
     Route: 065
     Dates: start: 20090307
  4. TACROLIMUS [Concomitant]
  5. VANCOMYCIN [Concomitant]
  6. MEROPENEM [Concomitant]
  7. AMBISOME [Concomitant]
     Dosage: DRUG REPORTED: AMBISONE
  8. ACYCLOVIR [Concomitant]
  9. NYSTATIN [Concomitant]
  10. HYDROCORTISONE [Concomitant]
     Route: 042
     Dates: start: 20090305, end: 20090310

REACTIONS (2)
  - GRAFT DYSFUNCTION [None]
  - ILL-DEFINED DISORDER [None]
